FAERS Safety Report 7699472-9 (Version None)
Quarter: 2011Q3

REPORT INFORMATION
  Report Type: 
  Country: None (occurrence: None)
  Receive Date: 20110820
  Receipt Date: 20101105
  Transmission Date: 20111222
  Serious: No
  Sender: FDA-Public Use
  Company Number: US-ALLERGAN-1014350US

PATIENT
  Age: 80 Year
  Sex: Male

DRUGS (6)
  1. SANCTURA XR [Suspect]
     Dosage: 60 MG, QOD
     Route: 048
     Dates: start: 20101102, end: 20101104
  2. LEVOTHYROXINE SODIUM [Concomitant]
     Dosage: 0.88 MG, UNK
  3. LEVOTHYROXINE SODIUM [Concomitant]
     Dosage: UNK
  4. LIPITOR [Concomitant]
     Dosage: 10 MG, QHS
  5. SANCTURA XR [Suspect]
     Indication: HYPERTONIC BLADDER
     Dosage: 60 MG, BID
     Route: 048
     Dates: start: 20101021, end: 20101101
  6. ATENOLOL [Concomitant]
     Dosage: 25 MG, UNK

REACTIONS (1)
  - CONSTIPATION [None]
